FAERS Safety Report 12852903 (Version 1)
Quarter: 2016Q4

REPORT INFORMATION
  Report Type: Spontaneous
  Country: US (occurrence: US)
  Receive Date: 20161014
  Receipt Date: 20161014
  Transmission Date: 20170207
  Serious: Yes (Other)
  Sender: FDA-Public Use
  Company Number: None

PATIENT
  Sex: Female

DRUGS (1)
  1. PRIMIDONE 50MG TAB PAR PHARMACEUTICALS [Suspect]
     Active Substance: PRIMIDONE
     Dosage: 50MG TAKE 3 TABS DAILY PO
     Route: 048
     Dates: start: 20160609, end: 20160919

REACTIONS (3)
  - Somnolence [None]
  - Product substitution issue [None]
  - Feeling abnormal [None]
